FAERS Safety Report 21539642 (Version 1)
Quarter: 2022Q4

REPORT INFORMATION
  Report Type: Spontaneous
  Country: US (occurrence: US)
  Receive Date: 20221102
  Receipt Date: 20221102
  Transmission Date: 20230113
  Serious: Yes (Hospitalization)
  Sender: FDA-Public Use
  Company Number: US-AMGEN-USASP2022185680

PATIENT
  Age: 86 Year
  Sex: Female
  Weight: 45.359 kg

DRUGS (1)
  1. PROLIA [Suspect]
     Active Substance: DENOSUMAB
     Indication: Osteoporosis postmenopausal
     Dosage: 60UNK, Q6MO
     Route: 058
     Dates: start: 2010, end: 2019

REACTIONS (7)
  - Heart rate abnormal [Unknown]
  - Osteoporosis postmenopausal [Unknown]
  - Back pain [Unknown]
  - Injection site pain [Unknown]
  - Sacral pain [Unknown]
  - Bone pain [Unknown]
  - Inappropriate schedule of product administration [Unknown]
